FAERS Safety Report 12484855 (Version 1)
Quarter: 2016Q2

REPORT INFORMATION
  Report Type: Spontaneous
  Country: US (occurrence: US)
  Receive Date: 20160621
  Receipt Date: 20160621
  Transmission Date: 20160815
  Serious: No
  Sender: FDA-Public Use
  Company Number: US-HILL DERMACEUTICALS, INC.-1054121

PATIENT
  Age: 86 Year
  Sex: Male

DRUGS (1)
  1. TOLAK [Suspect]
     Active Substance: FLUOROURACIL
     Indication: ACTINIC KERATOSIS
     Route: 061
     Dates: start: 20160202, end: 20160205

REACTIONS (1)
  - Eye swelling [Recovered/Resolved]

NARRATIVE: CASE EVENT DATE: 20160205
